FAERS Safety Report 22889918 (Version 4)
Quarter: 2024Q1

REPORT INFORMATION
  Report Type: Spontaneous
  Country: US (occurrence: US)
  Receive Date: 20230831
  Receipt Date: 20240223
  Transmission Date: 20240410
  Serious: Yes (Other)
  Sender: FDA-Public Use
  Company Number: US-PFIZER INC-202300232951

PATIENT
  Age: 84 Year
  Sex: Female
  Weight: 76.2 kg

DRUGS (3)
  1. IBRANCE [Suspect]
     Active Substance: PALBOCICLIB
     Indication: Breast cancer female
     Dosage: 125 MG
     Dates: start: 2023
  2. IBRANCE [Suspect]
     Active Substance: PALBOCICLIB
     Dosage: TAKE 1 TABLET (100MG) BY MOUTH ONCE DAILY. TAKE FOR 21 DAYS ON, THEN 7 DAYS OFF WITH OR WITHOUT FOOD
     Route: 048
     Dates: start: 2023
  3. TAMOXIFEN [Concomitant]
     Active Substance: TAMOXIFEN
     Dosage: UNK (THREE MONTH PRESCRIPTION)
     Dates: start: 202401

REACTIONS (2)
  - Full blood count decreased [Unknown]
  - Asthenia [Unknown]
